FAERS Safety Report 9582855 (Version 3)
Quarter: 2014Q4

REPORT INFORMATION
  Report Type: Spontaneous
  Country: US (occurrence: US)
  Receive Date: 20131002
  Receipt Date: 20141117
  Transmission Date: 20150529
  Serious: Yes (Other)
  Sender: FDA-Public Use
  Company Number: US-AMGEN-USASP2013042485

PATIENT
  Age: 59 Year
  Sex: Female

DRUGS (1)
  1. ENBREL [Suspect]
     Active Substance: ETANERCEPT
     Indication: PSORIATIC ARTHROPATHY
     Dosage: 50 MG, QWK
     Route: 065
     Dates: start: 20130430

REACTIONS (10)
  - Laryngitis [Recovered/Resolved]
  - Vulvovaginal mycotic infection [Recovered/Resolved]
  - Vaginal infection [Recovered/Resolved]
  - Upper respiratory tract infection [Recovered/Resolved]
  - Fungal infection [Recovered/Resolved]
  - Injection site pain [Not Recovered/Not Resolved]
  - Vulvovaginal pruritus [Recovered/Resolved]
  - Streptococcus test positive [Not Recovered/Not Resolved]
  - Infection [Recovered/Resolved]
  - Vaginitis bacterial [Recovered/Resolved]

NARRATIVE: CASE EVENT DATE: 20130513
